FAERS Safety Report 21323443 (Version 3)
Quarter: 2024Q1

REPORT INFORMATION
  Report Type: Report from Study
  Country: GB (occurrence: GB)
  Receive Date: 20220912
  Receipt Date: 20240222
  Transmission Date: 20240410
  Serious: Yes (Other)
  Sender: FDA-Public Use
  Company Number: GB-ABBVIE-22K-167-4534749-00

PATIENT
  Age: 69 Year
  Sex: Female
  Weight: 89 kg

DRUGS (14)
  1. SKYRIZI [Suspect]
     Active Substance: RISANKIZUMAB-RZAA
     Indication: Psoriasis
     Route: 058
     Dates: start: 20210513
  2. ESTRADIOL [Concomitant]
     Active Substance: ESTRADIOL
     Indication: Product used for unknown indication
     Dates: start: 20220120
  3. PROPRANOLOL [Concomitant]
     Active Substance: PROPRANOLOL HYDROCHLORIDE
     Indication: Product used for unknown indication
     Dates: start: 19940715
  4. VENLAFAXINE [Concomitant]
     Active Substance: VENLAFAXINE HYDROCHLORIDE
     Indication: Product used for unknown indication
     Dates: start: 19990715
  5. ATORVASTATIN [Concomitant]
     Active Substance: ATORVASTATIN
     Indication: Product used for unknown indication
     Dates: start: 20100715
  6. SOLIFENACIN SUCCINATE [Concomitant]
     Active Substance: SOLIFENACIN SUCCINATE
     Indication: Product used for unknown indication
     Dates: start: 20190115, end: 20220401
  7. LISINOPRIL [Concomitant]
     Active Substance: LISINOPRIL
     Indication: Product used for unknown indication
     Dates: start: 20190115
  8. COCODAMOL [Concomitant]
     Active Substance: ACETAMINOPHEN\CODEINE PHOSPHATE
     Indication: Product used for unknown indication
     Dates: start: 20190615
  9. OMEPRAZOLE [Concomitant]
     Active Substance: OMEPRAZOLE
     Indication: Product used for unknown indication
     Dates: start: 20190827
  10. VITAMIN B [Concomitant]
     Active Substance: VITAMIN B
     Indication: Product used for unknown indication
     Dates: start: 20191210
  11. METFORMIN [Concomitant]
     Active Substance: METFORMIN HYDROCHLORIDE
     Indication: Product used for unknown indication
     Dates: start: 20200128
  12. FLUOROURACIL [Concomitant]
     Active Substance: FLUOROURACIL
     Indication: Product used for unknown indication
     Dates: start: 20210818, end: 20220401
  13. PFIZER-BIONTECH COVID-19 VACCINE [Concomitant]
     Active Substance: TOZINAMERAN
     Indication: COVID-19 immunisation
     Dosage: TIME INTERVAL: 1 TOTAL
     Route: 030
     Dates: start: 20220421, end: 20220421
  14. IMIQUIMOD [Concomitant]
     Active Substance: IMIQUIMOD
     Indication: Product used for unknown indication
     Dates: start: 20220902

REACTIONS (1)
  - Basal cell carcinoma [Not Recovered/Not Resolved]

NARRATIVE: CASE EVENT DATE: 20220616
